FAERS Safety Report 4866055-5 (Version None)
Quarter: 2005Q4

REPORT INFORMATION
  Report Type: 
  Country: None (occurrence: None)
  Receive Date: 20051221
  Receipt Date: 20051213
  Transmission Date: 20060501
  Serious: Yes (Hospitalization, Other)
  Sender: FDA-Public Use
  Company Number: 2005-11-1060

PATIENT
  Age: 50 Year
  Sex: Male
  Weight: 86.1834 kg

DRUGS (17)
  1. PEG-INTRON [Suspect]
     Indication: HEPATITIS C
     Dosage: 150 MCG QWK SUBCUTANEOUS
     Route: 058
     Dates: start: 20050926
  2. REBETOL [Suspect]
     Indication: HEPATITIS C
     Dosage: SEE IMAGE
     Route: 048
     Dates: start: 20050926, end: 20051110
  3. REBETOL [Suspect]
     Indication: HEPATITIS C
     Dosage: SEE IMAGE
     Route: 048
     Dates: start: 20051128
  4. ACTOS [Concomitant]
  5. AMITRIPTYLINE HCL [Concomitant]
  6. ASPIRIN [Concomitant]
  7. ATENOLOL [Concomitant]
  8. GEMFIBROZIL [Concomitant]
  9. METFORMIN HYDROCHLORIDE [Concomitant]
  10. MILK THISTLE FRUIT [Concomitant]
  11. OXYCONTIN [Concomitant]
  12. QUINAPRIL HCL [Concomitant]
  13. IBUPROFEN [Concomitant]
  14. HYDROCHLOROTHIAZIDE [Concomitant]
  15. LACTULOSE [Concomitant]
  16. REGLAN [Concomitant]
  17. DECADRON [Concomitant]

REACTIONS (23)
  - AMNESIA [None]
  - ANOREXIA [None]
  - ANXIETY [None]
  - BACK PAIN [None]
  - BLOOD GLUCOSE DECREASED [None]
  - BLOOD PRESSURE INCREASED [None]
  - DIARRHOEA [None]
  - DRUG HYPERSENSITIVITY [None]
  - ENCEPHALITIS [None]
  - FATIGUE [None]
  - HAEMATOCRIT DECREASED [None]
  - HAEMOGLOBIN DECREASED [None]
  - HEADACHE [None]
  - HEART RATE INCREASED [None]
  - HEPATIC ENCEPHALOPATHY [None]
  - NEUTROPHIL COUNT DECREASED [None]
  - PAIN [None]
  - PANCREATIC DISORDER [None]
  - PHOTOPHOBIA [None]
  - PLATELET COUNT DECREASED [None]
  - SOMNOLENCE [None]
  - URINE KETONE BODY PRESENT [None]
  - WHITE BLOOD CELL COUNT DECREASED [None]
